FAERS Safety Report 18396528 (Version 2)
Quarter: 2021Q1

REPORT INFORMATION
  Report Type: Spontaneous
  Country: US (occurrence: US)
  Receive Date: 20201019
  Receipt Date: 20210318
  Transmission Date: 20210419
  Serious: No
  Sender: FDA-Public Use
  Company Number: US-ELI_LILLY_AND_COMPANY-US202009010625

PATIENT
  Sex: Female

DRUGS (3)
  1. TRULICITY [Interacting]
     Active Substance: DULAGLUTIDE
     Indication: TYPE 2 DIABETES MELLITUS
     Dosage: 0.75 MG, UNKNOWN
     Route: 058
     Dates: start: 202008
  2. TRULICITY [Interacting]
     Active Substance: DULAGLUTIDE
     Dosage: 0.75 MG, UNKNOWN
     Route: 058
  3. TRULICITY [Suspect]
     Active Substance: DULAGLUTIDE
     Indication: TYPE 2 DIABETES MELLITUS
     Dosage: 1.5 MG, UNKNOWN
     Route: 058
     Dates: start: 202008

REACTIONS (7)
  - Abnormal dreams [Not Recovered/Not Resolved]
  - Gastrointestinal disorder [Recovering/Resolving]
  - Erythema [Unknown]
  - Burning sensation [Unknown]
  - Drug interaction [Unknown]
  - Pruritus [Unknown]
  - Nausea [Recovering/Resolving]
